FAERS Safety Report 25949947 (Version 1)
Quarter: 2025Q4

REPORT INFORMATION
  Report Type: Spontaneous
  Country: EU (occurrence: EU)
  Receive Date: 20251022
  Receipt Date: 20251022
  Transmission Date: 20260118
  Serious: Yes (Other)
  Sender: VERTEX
  Company Number: EU-VERTEX PHARMACEUTICALS-2025-017399

PATIENT
  Age: 43 Year
  Sex: Male

DRUGS (4)
  1. ELEXACAFTOR\IVACAFTOR\TEZACAFTOR [Suspect]
     Active Substance: ELEXACAFTOR\IVACAFTOR\TEZACAFTOR
     Indication: Cystic fibrosis
     Dosage: 2 TABLETS (75 MG IVACAFTOR, 50 MG TEZACAFTOR AND 100 MG ELEXACAFTOR) IN THE MORNING
     Route: 048
     Dates: start: 202202, end: 2022
  2. ELEXACAFTOR\IVACAFTOR\TEZACAFTOR [Suspect]
     Active Substance: ELEXACAFTOR\IVACAFTOR\TEZACAFTOR
     Dosage: QUARTER TAB OF ETI WEEKLY, REACHING THERAPEUTIC DOSE 2 TABS
     Route: 048
  3. KALYDECO [Suspect]
     Active Substance: IVACAFTOR
     Indication: Cystic fibrosis
     Dosage: 150 MG IVA QD
     Route: 048
     Dates: start: 202202, end: 2022
  4. KALYDECO [Suspect]
     Active Substance: IVACAFTOR
     Dosage: 0.15MG;2MG/ML: 1 TAB 150MG DILUTED IN 75ML. DOUBLED TO 1/8 TAB IN5 DAYS, THEN 1/4WEEK REACHING 150MG
     Route: 048

REACTIONS (1)
  - Drug-induced liver injury [Unknown]
